FAERS Safety Report 9298965 (Version 1)
Quarter: 2013Q2

REPORT INFORMATION
  Report Type: Spontaneous
  Country: US (occurrence: US)
  Receive Date: 20130520
  Receipt Date: 20130520
  Transmission Date: 20140414
  Serious: No
  Sender: FDA-Public Use
  Company Number: US-SANOFI-AVENTIS-2013SA005271

PATIENT
  Sex: 0

DRUGS (2)
  1. APIDRA [Suspect]
     Route: 058
     Dates: start: 2009
  2. NOVOLOG [Concomitant]

REACTIONS (1)
  - Feeling jittery [Unknown]
